FAERS Safety Report 21059283 (Version 1)
Quarter: 2022Q3

REPORT INFORMATION
  Report Type: Spontaneous
  Country: US (occurrence: US)
  Receive Date: 20220708
  Receipt Date: 20220708
  Transmission Date: 20221027
  Serious: Yes (Other)
  Sender: FDA-Public Use
  Company Number: US-NOVARTISPH-NVSC2022US152934

PATIENT
  Age: 9 Month
  Sex: Female

DRUGS (3)
  1. CIPRODEX [Suspect]
     Active Substance: CIPROFLOXACIN HYDROCHLORIDE\DEXAMETHASONE
     Indication: Choanal atresia
     Dosage: UNK, BID (1 DROP IN THE RIGHT NOSTRIL AFTER SALINE DROPS)
     Route: 045
  2. INSULIN NOS [Concomitant]
     Active Substance: INSULIN NOS
     Indication: Type 1 diabetes mellitus
     Dosage: UNK
     Route: 065
  3. SALINE [Concomitant]
     Active Substance: SODIUM CHLORIDE
     Indication: Choanal atresia
     Dosage: UNK
     Route: 065

REACTIONS (3)
  - Neonatal hyperglycaemia [Unknown]
  - Off label use [Unknown]
  - Product use in unapproved indication [Unknown]
